FAERS Safety Report 6404280-2 (Version None)
Quarter: 2009Q4

REPORT INFORMATION
  Report Type: 
  Country: None (occurrence: None)
  Receive Date: 20091016
  Receipt Date: 20091014
  Transmission Date: 20100525
  Serious: Yes (Other)
  Sender: FDA-Public Use
  Company Number: A0812031A

PATIENT
  Age: 53 Year
  Sex: Female

DRUGS (5)
  1. REQUIP [Suspect]
  2. REBIF [Suspect]
     Indication: MULTIPLE SCLEROSIS
     Route: 058
     Dates: start: 20051101
  3. CYMBALTA [Suspect]
  4. ADVIL [Concomitant]
  5. PAIN MEDICATIONS [Concomitant]
     Indication: PAIN

REACTIONS (1)
  - HEPATIC ENZYME INCREASED [None]
